FAERS Safety Report 16759842 (Version 3)
Quarter: 2019Q3

REPORT INFORMATION
  Report Type: Spontaneous
  Country: FR (occurrence: FR)
  Receive Date: 20190830
  Receipt Date: 20190917
  Transmission Date: 20191005
  Serious: Yes (Hospitalization, Other)
  Sender: FDA-Public Use
  Company Number: FR-INDIVIOR US-INDV-121297-2019

PATIENT
  Age: 46 Year
  Sex: Male

DRUGS (2)
  1. NICOTIANA TABACUM [Suspect]
     Active Substance: TOBACCO LEAF
     Indication: TOBACCO USER
     Dosage: UNK
     Route: 055
  2. SUBUTEX [Suspect]
     Active Substance: BUPRENORPHINE HYDROCHLORIDE
     Indication: PRODUCT USED FOR UNKNOWN INDICATION
     Dosage: 4MG, QD (IN THE MORNING)
     Route: 060

REACTIONS (5)
  - Adenocarcinoma [Unknown]
  - Chronic hepatitis C [Unknown]
  - Abscess [Unknown]
  - Lung neoplasm malignant [Unknown]
  - Drug dependence [Unknown]

NARRATIVE: CASE EVENT DATE: 1996
